FAERS Safety Report 16896702 (Version 1)
Quarter: 2019Q4

REPORT INFORMATION
  Report Type: Spontaneous
  Country: CA (occurrence: CA)
  Receive Date: 20191008
  Receipt Date: 20191008
  Transmission Date: 20200122
  Serious: Yes (Hospitalization)
  Sender: FDA-Public Use
  Company Number: CA-HLSUS-2019-CA-001297

PATIENT
  Age: 53 Year
  Sex: Male

DRUGS (3)
  1. CLOZAPINE. [Suspect]
     Active Substance: CLOZAPINE
     Indication: SCHIZOPHRENIA
     Dosage: 600 MG ONCE DAILY
     Route: 048
  2. BENZTROPINE. [Concomitant]
     Active Substance: BENZTROPINE
  3. LEVOTHYROXINE. [Concomitant]
     Active Substance: LEVOTHYROXINE

REACTIONS (7)
  - Dizziness [Recovering/Resolving]
  - White blood cell count decreased [Recovering/Resolving]
  - Gamma-glutamyltransferase increased [Recovering/Resolving]
  - Lymphocyte count decreased [Recovering/Resolving]
  - Hepatic cirrhosis [Recovering/Resolving]
  - Haemoglobin decreased [Recovering/Resolving]
  - Seizure [Recovering/Resolving]
